FAERS Safety Report 6121322-2 (Version None)
Quarter: 2009Q1

REPORT INFORMATION
  Report Type: 
  Country: None (occurrence: None)
  Receive Date: 20090313
  Receipt Date: 20090312
  Transmission Date: 20090719
  Serious: Yes (Death)
  Sender: FDA-Public Use
  Company Number: 2007SP011332

PATIENT
  Age: 64 Year
  Sex: Male
  Weight: 41 kg

DRUGS (11)
  1. TEMODAL [Suspect]
     Indication: EPENDYMOMA MALIGNANT
     Dosage: 150 MG/M2;QD;PO ; 200 MG/M2;QD;PO ; 200 MG/M2;QD;PO ; 200 MG/M2;QD;PO
     Route: 048
     Dates: start: 20060928, end: 20061005
  2. TEMODAL [Suspect]
     Indication: LUNG NEOPLASM MALIGNANT
     Dosage: 150 MG/M2;QD;PO ; 200 MG/M2;QD;PO ; 200 MG/M2;QD;PO ; 200 MG/M2;QD;PO
     Route: 048
     Dates: start: 20060928, end: 20061005
  3. TEMODAL [Suspect]
     Indication: EPENDYMOMA MALIGNANT
     Dosage: 150 MG/M2;QD;PO ; 200 MG/M2;QD;PO ; 200 MG/M2;QD;PO ; 200 MG/M2;QD;PO
     Route: 048
     Dates: start: 20061030, end: 20061103
  4. TEMODAL [Suspect]
     Indication: LUNG NEOPLASM MALIGNANT
     Dosage: 150 MG/M2;QD;PO ; 200 MG/M2;QD;PO ; 200 MG/M2;QD;PO ; 200 MG/M2;QD;PO
     Route: 048
     Dates: start: 20061030, end: 20061103
  5. TEMODAL [Suspect]
     Indication: EPENDYMOMA MALIGNANT
     Dosage: 150 MG/M2;QD;PO ; 200 MG/M2;QD;PO ; 200 MG/M2;QD;PO ; 200 MG/M2;QD;PO
     Route: 048
     Dates: start: 20061129, end: 20061203
  6. TEMODAL [Suspect]
     Indication: LUNG NEOPLASM MALIGNANT
     Dosage: 150 MG/M2;QD;PO ; 200 MG/M2;QD;PO ; 200 MG/M2;QD;PO ; 200 MG/M2;QD;PO
     Route: 048
     Dates: start: 20061129, end: 20061203
  7. TEMODAL [Suspect]
     Indication: EPENDYMOMA MALIGNANT
     Dosage: 150 MG/M2;QD;PO ; 200 MG/M2;QD;PO ; 200 MG/M2;QD;PO ; 200 MG/M2;QD;PO
     Route: 048
     Dates: start: 20070104, end: 20070108
  8. TEMODAL [Suspect]
     Indication: LUNG NEOPLASM MALIGNANT
     Dosage: 150 MG/M2;QD;PO ; 200 MG/M2;QD;PO ; 200 MG/M2;QD;PO ; 200 MG/M2;QD;PO
     Route: 048
     Dates: start: 20070104, end: 20070108
  9. ALEVIATIN [Concomitant]
  10. CYANOCOBALAMIN [Concomitant]
  11. RINDERON [Concomitant]

REACTIONS (7)
  - ALTERED STATE OF CONSCIOUSNESS [None]
  - LUNG NEOPLASM MALIGNANT [None]
  - MALIGNANT PLEURAL EFFUSION [None]
  - NAUSEA [None]
  - PLEURAL EFFUSION [None]
  - PNEUMONIA ASPIRATION [None]
  - PNEUMONIA STAPHYLOCOCCAL [None]
